FAERS Safety Report 5305624-5 (Version None)
Quarter: 2007Q2

REPORT INFORMATION
  Report Type: 
  Country: None (occurrence: None)
  Receive Date: 20070416
  Receipt Date: 20070328
  Transmission Date: 20071010
  Serious: Yes (Hospitalization)
  Sender: FDA-Public Use
  Company Number: DSA_29689_2007

PATIENT
  Age: 66 Year
  Sex: Male

DRUGS (5)
  1. TEMESTA [Suspect]
     Dosage: 1 MG TID PO
     Route: 048
  2. AVLOCARDYL [Suspect]
     Dosage: 160 MG Q DAY PO
     Route: 048
  3. FLUOXETINE [Suspect]
     Dosage: DF PO
     Route: 048
  4. STILNOX /00914901/ [Suspect]
     Dosage: DF Q DAY PO
     Route: 048
  5. TERCIAN  /00759301/ [Suspect]
     Dosage: 25 MG BID PO
     Route: 048

REACTIONS (4)
  - BLOOD GLUCOSE INCREASED [None]
  - COORDINATION ABNORMAL [None]
  - FALL [None]
  - PARKINSONISM [None]
